FAERS Safety Report 17918136 (Version 1)
Quarter: 2020Q2

REPORT INFORMATION
  Report Type: Spontaneous
  Country: CA (occurrence: CA)
  Receive Date: 20200619
  Receipt Date: 20200619
  Transmission Date: 20200714
  Serious: Yes (Hospitalization)
  Sender: FDA-Public Use
  Company Number: CA-ROCHE-2622321

PATIENT
  Age: 47 Year
  Sex: Male
  Weight: 94 kg

DRUGS (5)
  1. HEPARIN CALCIUM [Concomitant]
     Active Substance: HEPARIN CALCIUM
  2. XARELTO [Concomitant]
     Active Substance: RIVAROXABAN
     Route: 065
  3. ACTIVASE [Suspect]
     Active Substance: ALTEPLASE
     Indication: DEEP VEIN THROMBOSIS
     Route: 042
  4. ACETAMINOPHEN. [Concomitant]
     Active Substance: ACETAMINOPHEN
     Route: 065
  5. FENTANYL. [Concomitant]
     Active Substance: FENTANYL

REACTIONS (3)
  - Ecchymosis [Unknown]
  - Injection site haematoma [Unknown]
  - Pain [Unknown]
